FAERS Safety Report 8769312 (Version 2)
Quarter: 2013Q2

REPORT INFORMATION
  Report Type: Spontaneous
  Country: US (occurrence: US)
  Receive Date: 20120905
  Receipt Date: 20130411
  Transmission Date: 20140414
  Serious: Yes (Hospitalization)
  Sender: FDA-Public Use
  Company Number: US-PFIZER INC-2012207489

PATIENT
  Age: 65 Year
  Sex: Female
  Weight: 88.44 kg

DRUGS (5)
  1. CELEBREX [Suspect]
     Indication: ARTHRITIS
     Dosage: 100 MG, TWO TIMES A DAY
     Route: 048
  2. NEURONTIN [Suspect]
     Indication: NEUROPATHY PERIPHERAL
     Dosage: 600 MG, FOUR TIMES A DAY
     Route: 048
  3. ZOLOFT [Suspect]
     Indication: DEPRESSION
     Dosage: 150 MG (1 AND HALF TABLET OF 100MG), ONCE A DAY
     Route: 048
  4. SYNTHROID [Concomitant]
     Indication: HYPOTHYROIDISM
     Dosage: 137 UG
  5. CALAN [Concomitant]
     Dosage: UNK

REACTIONS (2)
  - Back disorder [Recovering/Resolving]
  - Malaise [Unknown]
